FAERS Safety Report 23500734 (Version 1)
Quarter: 2024Q1

REPORT INFORMATION
  Report Type: Spontaneous
  Country: US (occurrence: US)
  Receive Date: 20240208
  Receipt Date: 20240208
  Transmission Date: 20240410
  Serious: Yes (Disabling, Other)
  Sender: FDA-Public Use
  Company Number: US-PFIZER INC-PV202400017932

PATIENT
  Age: 79 Year
  Sex: Female
  Weight: 104 kg

DRUGS (1)
  1. IBRANCE [Suspect]
     Active Substance: PALBOCICLIB
     Indication: Breast cancer female
     Dosage: ON DAYS 1-21 OF 28 DAY TX CYCLE
     Route: 048

REACTIONS (2)
  - Wheelchair user [Unknown]
  - Weight increased [Unknown]

NARRATIVE: CASE EVENT DATE: 20231213
